FAERS Safety Report 15577618 (Version 3)
Quarter: 2019Q4

REPORT INFORMATION
  Report Type: Report from Study
  Country: US (occurrence: US)
  Receive Date: 20181102
  Receipt Date: 20191112
  Transmission Date: 20200122
  Serious: Yes (Hospitalization, Other)
  Sender: FDA-Public Use
  Company Number: US-ROCHE-2207384

PATIENT
  Sex: Female
  Weight: 97.6 kg

DRUGS (17)
  1. CELLCEPT [Suspect]
     Active Substance: MYCOPHENOLATE MOFETIL\MYCOPHENOLATE MOFETIL HYDROCHLORIDE
     Indication: CHRONIC KIDNEY DISEASE
  2. PREDNISONE. [Concomitant]
     Active Substance: PREDNISONE
     Dosage: 2 TABLETS FOR 7 DAYS; ONGOING: YES
     Route: 048
  3. CALCIUM CARBONATE. [Concomitant]
     Active Substance: CALCIUM CARBONATE
     Dosage: CHEW 1 TABLET, ONGOING: YES
     Route: 065
  4. POTASSIUM CHLORIDE. [Concomitant]
     Active Substance: POTASSIUM CHLORIDE
     Dosage: DAILY AS NEEDED ONGOING: YES
     Route: 048
  5. ALPRAZOLAM. [Concomitant]
     Active Substance: ALPRAZOLAM
     Indication: ANXIETY
     Dosage: AS NEEDED ONGOING: YES
     Route: 048
  6. ROSUVASTATIN. [Concomitant]
     Active Substance: ROSUVASTATIN
     Dosage: NIGHTLY; ONGOING: YES
     Route: 048
  7. CELLCEPT [Suspect]
     Active Substance: MYCOPHENOLATE MOFETIL\MYCOPHENOLATE MOFETIL HYDROCHLORIDE
     Indication: HEART TRANSPLANT
     Dosage: ONGOING: YES 90 DAY SUPPLU 3 TIMES REFILL
     Route: 048
  8. MAGNESIUM OXIDE. [Concomitant]
     Active Substance: MAGNESIUM OXIDE
     Dosage: ONGOING: YES
     Route: 048
  9. ESCITALOPRAM [Concomitant]
     Active Substance: ESCITALOPRAM OXALATE
     Dosage: NIGHTLY
     Route: 048
  10. VITAMIN D3 [Concomitant]
     Active Substance: CHOLECALCIFEROL
     Dosage: ONGOING: YES
     Route: 048
  11. FLUTICASONE. [Concomitant]
     Active Substance: FLUTICASONE
     Indication: RHINITIS
     Dosage: 1 SPRAY IN EACH NOSTRIL ONGOING: YES
     Route: 065
  12. CELLCEPT [Suspect]
     Active Substance: MYCOPHENOLATE MOFETIL\MYCOPHENOLATE MOFETIL HYDROCHLORIDE
     Indication: LUNG TRANSPLANT
     Route: 048
  13. MECLIZINE [Concomitant]
     Active Substance: MECLIZINE HYDROCHLORIDE
  14. MONTELUKAST [Concomitant]
     Active Substance: MONTELUKAST SODIUM
     Dosage: CHEW1TABNIGHTLY, 1 TO2 TABLETS DAILY;ONGOING: YES
     Route: 065
  15. PREDNISONE. [Concomitant]
     Active Substance: PREDNISONE
     Route: 048
  16. TACROLIMUS. [Concomitant]
     Active Substance: TACROLIMUS
     Dosage: ONGOING: YES
     Route: 048
  17. FUROSEMIDE. [Concomitant]
     Active Substance: FUROSEMIDE
     Indication: WEIGHT INCREASED
     Dosage: ONGOING: YES
     Route: 048

REACTIONS (29)
  - Dizziness [Unknown]
  - Gait inability [Unknown]
  - Ear pain [Unknown]
  - Pulse abnormal [Unknown]
  - Hypotension [Unknown]
  - Blood albumin decreased [Unknown]
  - Blood urea decreased [Unknown]
  - Blood alkaline phosphatase decreased [Unknown]
  - Skin lesion [Unknown]
  - Vestibulitis [Unknown]
  - Unevaluable event [Unknown]
  - Body temperature decreased [Unknown]
  - Rhinorrhoea [Unknown]
  - Tinnitus [Unknown]
  - Hypertensive urgency [Unknown]
  - Impaired gastric emptying [Unknown]
  - Nasopharyngitis [Unknown]
  - Hypomagnesaemia [Unknown]
  - Depressed mood [Unknown]
  - Body mass index increased [Unknown]
  - Malaise [Unknown]
  - Blood pressure abnormal [Unknown]
  - Urinary tract infection [Unknown]
  - Balance disorder [Unknown]
  - Headache [Unknown]
  - Blood glucose increased [Unknown]
  - Peripheral swelling [Unknown]
  - Paranasal sinus discomfort [Unknown]
  - Upper-airway cough syndrome [Unknown]
